FAERS Safety Report 9801947 (Version 3)
Quarter: 2014Q1

REPORT INFORMATION
  Report Type: Report from Study
  Country: US (occurrence: US)
  Receive Date: 20140107
  Receipt Date: 20140226
  Transmission Date: 20141002
  Serious: Yes (Hospitalization)
  Sender: FDA-Public Use
  Company Number: PHEH2014US000534

PATIENT
  Age: 77 Year
  Sex: Female
  Weight: 87.75 kg

DRUGS (13)
  1. GLEEVEC [Suspect]
     Indication: CHRONIC MYELOID LEUKAEMIA
     Dosage: 400 MG, QD
     Route: 048
     Dates: start: 200610
  2. ANALGESICS [Concomitant]
     Dosage: UNK UKN, UNK
  3. ASPIRIN [Concomitant]
     Dosage: 81 MG, DAILY
  4. DILTIAZEM [Concomitant]
     Dosage: 180 MG, BID
  5. BUMEX [Concomitant]
     Dosage: 1 MG, DAILY
  6. PEPCID [Concomitant]
     Dosage: 40 MG, BEDTIME
  7. ZOLOFT [Concomitant]
     Dosage: 100 MG, DAILY
  8. POTASSIUM [Concomitant]
     Dosage: 20 MEQ, DAILY
  9. LIPITOR [Concomitant]
     Dosage: 20 MG, DAILY
  10. OS-CAL [Concomitant]
     Dosage: 2 DF, DAILY
  11. CENTRUM [Concomitant]
     Dosage: UNK UKN, DAILY
  12. VITAMIN D [Concomitant]
     Dosage: 3000 IU, DAILY
  13. VITAMIN A [Concomitant]
     Dosage: UNK UKN, UNK

REACTIONS (9)
  - Fall [Unknown]
  - Hip fracture [Unknown]
  - Feeling abnormal [Unknown]
  - Discomfort [Unknown]
  - Dizziness [Unknown]
  - Muscle spasms [Unknown]
  - Anaemia [Unknown]
  - Thrombocytopenia [Unknown]
  - Anxiety [Unknown]
